FAERS Safety Report 15838170 (Version 1)
Quarter: 2019Q1

REPORT INFORMATION
  Report Type: Spontaneous
  Country: GB (occurrence: GB)
  Receive Date: 20190117
  Receipt Date: 20190117
  Transmission Date: 20190417
  Serious: Yes (Death, Other)
  Sender: FDA-Public Use
  Company Number: GB-PFIZER INC-2019022516

PATIENT
  Age: 52 Year
  Sex: Male

DRUGS (4)
  1. METHADONE [Suspect]
     Active Substance: METHADONE HYDROCHLORIDE
     Dosage: 30 ML, DAILY
  2. CLONAZEPAM. [Suspect]
     Active Substance: CLONAZEPAM
  3. PREGABALIN. [Suspect]
     Active Substance: PREGABALIN
     Dosage: UNK
  4. VALIUM [Suspect]
     Active Substance: DIAZEPAM

REACTIONS (2)
  - Pneumonia [Unknown]
  - Overdose [Fatal]

NARRATIVE: CASE EVENT DATE: 20180917
